FAERS Safety Report 6896815-0 (Version None)
Quarter: 2010Q3

REPORT INFORMATION
  Report Type: 
  Country: None (occurrence: None)
  Receive Date: 20100729
  Receipt Date: 20100716
  Transmission Date: 20110219
  Serious: Yes (Other)
  Sender: FDA-Public Use
  Company Number: THQ2010A01923

PATIENT
  Age: 70 Year
  Sex: Male

DRUGS (3)
  1. ACTOS [Suspect]
     Indication: TYPE 2 DIABETES MELLITUS
     Dosage: 30 MG (30 MG, 1 IN 1 D)
     Route: 048
     Dates: start: 20100601, end: 20100601
  2. GLUCOPHAGE [Concomitant]
  3. GLIMEPIRIDE [Concomitant]

REACTIONS (1)
  - BLINDNESS TRANSIENT [None]
